FAERS Safety Report 6054188-X (Version None)
Quarter: 2009Q1

REPORT INFORMATION
  Report Type: 
  Country: None (occurrence: None)
  Receive Date: 20090127
  Receipt Date: 20090116
  Transmission Date: 20090719
  Serious: Yes (Hospitalization)
  Sender: FDA-Public Use
  Company Number: US-ELI_LILLY_AND_COMPANY-US200901002732

PATIENT
  Sex: Female

DRUGS (3)
  1. BYETTA [Suspect]
     Indication: TYPE 2 DIABETES MELLITUS
     Route: 058
     Dates: start: 20080101, end: 20080101
  2. BYETTA [Suspect]
     Dosage: 10 UG, 2/D
     Route: 058
     Dates: start: 20080101
  3. GLIPIZIDE [Concomitant]

REACTIONS (11)
  - ANOREXIA [None]
  - APHASIA [None]
  - BLOOD GLUCOSE INCREASED [None]
  - BLOOD PRESSURE INCREASED [None]
  - CONSTIPATION [None]
  - EXPOSURE TO TOXIC AGENT [None]
  - MALAISE [None]
  - PROCTALGIA [None]
  - RASH PRURITIC [None]
  - SKIN EXFOLIATION [None]
  - SPEECH DISORDER [None]
